FAERS Safety Report 10973082 (Version 1)
Quarter: 2015Q2

REPORT INFORMATION
  Report Type: Spontaneous
  Country: US (occurrence: US)
  Receive Date: 20150401
  Receipt Date: 20150401
  Transmission Date: 20150821
  Serious: Yes (Hospitalization)
  Sender: FDA-Public Use
  Company Number: PHHY2015US036421

PATIENT

DRUGS (1)
  1. DIGOXIN. [Suspect]
     Active Substance: DIGOXIN
     Indication: ATRIAL FIBRILLATION
     Dosage: 5 ML, QD
     Route: 065

REACTIONS (11)
  - Nodal rhythm [Recovering/Resolving]
  - Toxicity to various agents [Unknown]
  - Vomiting [Unknown]
  - Vision blurred [Recovered/Resolved]
  - Bradycardia [Recovering/Resolving]
  - Incorrect dose administered [Unknown]
  - Renal failure [Unknown]
  - Cachexia [Unknown]
  - Nausea [Recovered/Resolved]
  - Urine output decreased [Unknown]
  - Fatigue [Unknown]
